FAERS Safety Report 13719938 (Version 1)
Quarter: 2017Q3

REPORT INFORMATION
  Report Type: Spontaneous
  Country: ES (occurrence: ES)
  Receive Date: 20170705
  Receipt Date: 20170705
  Transmission Date: 20171127
  Serious: Yes (Other)
  Sender: FDA-Public Use
  Company Number: ES-UCBSA-2017025449

PATIENT
  Age: 61 Year
  Sex: Female

DRUGS (1)
  1. VIMPAT [Suspect]
     Active Substance: LACOSAMIDE
     Indication: NEUROPATHY PERIPHERAL
     Dosage: 50 MG, 2X/DAY (BID)
     Route: 048
     Dates: start: 20161011, end: 20161214

REACTIONS (2)
  - Hallucination [Not Recovered/Not Resolved]
  - Nervousness [Not Recovered/Not Resolved]

NARRATIVE: CASE EVENT DATE: 20161011
